FAERS Safety Report 7305804-3 (Version None)
Quarter: 2011Q1

REPORT INFORMATION
  Report Type: 
  Country: None (occurrence: None)
  Receive Date: 20110222
  Receipt Date: 20110216
  Transmission Date: 20110831
  Serious: Yes (Life-Threatening)
  Sender: FDA-Public Use
  Company Number: B0701175A

PATIENT
  Sex: Female
  Weight: 78 kg

DRUGS (2)
  1. FLUTICASONE [Concomitant]
     Dosage: 25UG PER DAY
     Route: 055
     Dates: start: 20030101
  2. SEROXAT [Suspect]
     Indication: DEPRESSION
     Dosage: 20MG PER DAY
     Route: 048
     Dates: start: 20091001

REACTIONS (3)
  - SEDATION [None]
  - SUICIDAL IDEATION [None]
  - FATIGUE [None]
